FAERS Safety Report 4315455-0 (Version None)
Quarter: 2004Q1

REPORT INFORMATION
  Report Type: 
  Country: None (occurrence: None)
  Receive Date: 20040309
  Receipt Date: 20040225
  Transmission Date: 20041129
  Serious: Yes (Hospitalization)
  Sender: FDA-Public Use
  Company Number: US064431

PATIENT
  Age: 38 Year
  Sex: Male

DRUGS (5)
  1. ENBREL [Suspect]
     Indication: PSORIASIS
     Dosage: 25 MG, 2 IN 1 WEEKS, SC
     Route: 058
     Dates: start: 20030503, end: 20031201
  2. BUDESONIDE [Concomitant]
  3. ALBUTEROL SULFATE [Concomitant]
  4. TESTOSTERONE [Concomitant]
  5. METFORMIN HYDROCHLORIDE [Concomitant]

REACTIONS (2)
  - CONVULSION [None]
  - ENCEPHALITIS ALLERGIC [None]
